FAERS Safety Report 19963466 (Version 1)
Quarter: 2021Q4

REPORT INFORMATION
  Report Type: Spontaneous
  Country: US (occurrence: US)
  Receive Date: 20211018
  Receipt Date: 20211018
  Transmission Date: 20220303
  Serious: Yes (Death, Hospitalization, Other)
  Sender: FDA-Public Use
  Company Number: US-CASPER PHARMA LLC-2021CAS000118

PATIENT
  Age: 41 Year
  Sex: Male

DRUGS (4)
  1. ALLOPURINOL [Suspect]
     Active Substance: ALLOPURINOL
     Indication: Gout
     Dosage: UNK
     Route: 065
     Dates: start: 20181207
  2. PREDNISONE [Concomitant]
     Active Substance: PREDNISONE
     Indication: Gout
     Dosage: UNK
     Route: 065
     Dates: start: 20181127
  3. COLCHICINE [Concomitant]
     Active Substance: COLCHICINE
     Indication: Gout
     Dosage: UNK
     Route: 065
     Dates: start: 20181127
  4. FOLIC ACID [Concomitant]
     Active Substance: FOLIC ACID
     Indication: Gout
     Dosage: UNK
     Route: 065
     Dates: start: 20181207

REACTIONS (5)
  - Stevens-Johnson syndrome [Fatal]
  - Toxic epidermal necrolysis [Fatal]
  - Drug reaction with eosinophilia and systemic symptoms [Fatal]
  - Transaminases increased [Fatal]
  - Renal failure [Fatal]

NARRATIVE: CASE EVENT DATE: 20181201
